FAERS Safety Report 14045528 (Version 1)
Quarter: 2017Q4

REPORT INFORMATION
  Report Type: Spontaneous
  Country: KR (occurrence: KR)
  Receive Date: 20171005
  Receipt Date: 20171005
  Transmission Date: 20180321
  Serious: Yes (Death, Other)
  Sender: FDA-Public Use
  Company Number: KR-009507513-1710KOR000155

PATIENT
  Age: 63 Year
  Sex: Male
  Weight: 78.9 kg

DRUGS (1)
  1. NOXAFIL [Suspect]
     Active Substance: POSACONAZOLE
     Indication: ANTIFUNGAL PROPHYLAXIS
     Dosage: 300 MG, QD
     Route: 048
     Dates: start: 20170810, end: 20170810

REACTIONS (4)
  - Cardiac arrest [Unknown]
  - Pyrexia [Unknown]
  - Sepsis [Fatal]
  - Febrile neutropenia [Fatal]

NARRATIVE: CASE EVENT DATE: 2017
